FAERS Safety Report 7425568-2 (Version None)
Quarter: 2011Q2

REPORT INFORMATION
  Report Type: 
  Country: None (occurrence: None)
  Receive Date: 20110418
  Receipt Date: 20110418
  Transmission Date: 20111010
  Serious: Yes (Hospitalization)
  Sender: FDA-Public Use
  Company Number: None

PATIENT
  Age: 63 Year
  Sex: Male
  Weight: 52.5 kg

DRUGS (2)
  1. WARFARIN SODIUM [Suspect]
     Indication: ATRIAL FIBRILLATION
     Dosage: 7MG PM PO
     Route: 048
     Dates: start: 19970101
  2. WARFARIN SODIUM [Suspect]
     Indication: MITRAL VALVE REPLACEMENT
     Dosage: 7MG PM PO
     Route: 048
     Dates: start: 19970101

REACTIONS (6)
  - EPISTAXIS [None]
  - HAEMOGLOBIN DECREASED [None]
  - INTERNATIONAL NORMALISED RATIO INCREASED [None]
  - HAEMATOCRIT DECREASED [None]
  - HAEMOPTYSIS [None]
  - HAEMORRHAGE [None]
